FAERS Safety Report 10595354 (Version 1)
Quarter: 2014Q4

REPORT INFORMATION
  Report Type: Spontaneous
  Country: US (occurrence: None)
  Receive Date: 20141119
  Receipt Date: 20141119
  Transmission Date: 20150529
  Serious: No
  Sender: FDA-Public Use
  Company Number: None

PATIENT
  Age: 86 Year
  Sex: Female

DRUGS (2)
  1. KETOROLAC [Suspect]
     Active Substance: KETOROLAC\KETOROLAC TROMETHAMINE
  2. ENOXAPARIN [Suspect]
     Active Substance: ENOXAPARIN

REACTIONS (9)
  - Compartment syndrome [None]
  - Somnolence [None]
  - Arm amputation [None]
  - Fall [None]
  - Haematocrit decreased [None]
  - Haematochezia [None]
  - Melaena [None]
  - Haemoglobin decreased [None]
  - Atrial fibrillation [None]

NARRATIVE: CASE EVENT DATE: 20140905
